FAERS Safety Report 14355467 (Version 1)
Quarter: 2018Q1

REPORT INFORMATION
  Report Type: Spontaneous
  Country: US (occurrence: US)
  Receive Date: 20180105
  Receipt Date: 20180105
  Transmission Date: 20180509
  Serious: No
  Sender: FDA-Public Use
  Company Number: US-GLAXOSMITHKLINE-US2018000646

PATIENT
  Age: 82 Year
  Sex: Male

DRUGS (7)
  1. ELIQUIS [Concomitant]
     Active Substance: APIXABAN
  2. AZITHROMYCIN TABLET [Suspect]
     Active Substance: AZITHROMYCIN
     Indication: BRONCHITIS
     Dosage: 500 MG, 1D (TWO 250 MG TABLETS) FOR 5 DAYS
     Route: 048
     Dates: start: 20180102
  3. GLIPIZIDE. [Concomitant]
     Active Substance: GLIPIZIDE
  4. BREO ELLIPTA [Suspect]
     Active Substance: FLUTICASONE FUROATE\VILANTEROL TRIFENATATE
     Indication: RESPIRATORY TRACT CONGESTION
  5. BREO ELLIPTA [Suspect]
     Active Substance: FLUTICASONE FUROATE\VILANTEROL TRIFENATATE
     Indication: BRONCHITIS
     Dosage: 1 PUFF(S), 1D
     Route: 055
     Dates: start: 20180102, end: 20180102
  6. BREO ELLIPTA [Suspect]
     Active Substance: FLUTICASONE FUROATE\VILANTEROL TRIFENATATE
     Indication: COUGH
  7. TOUJEO [Concomitant]
     Active Substance: INSULIN GLARGINE

REACTIONS (6)
  - Vomiting [Recovering/Resolving]
  - Hyperhidrosis [Recovering/Resolving]
  - Feeling cold [Recovering/Resolving]
  - Feeling hot [Recovering/Resolving]
  - Chromaturia [Not Recovered/Not Resolved]
  - Dizziness [Recovering/Resolving]

NARRATIVE: CASE EVENT DATE: 20180102
